FAERS Safety Report 24877902 (Version 1)
Quarter: 2025Q1

REPORT INFORMATION
  Report Type: Spontaneous
  Country: US (occurrence: US)
  Receive Date: 20250123
  Receipt Date: 20250123
  Transmission Date: 20250408
  Serious: Yes (Other)
  Sender: RANBAXY
  Company Number: US-SUN PHARMACEUTICAL INDUSTRIES LTD-2025R1-490358

PATIENT
  Age: 64 Year
  Sex: Female
  Weight: 65.2 kg

DRUGS (1)
  1. DOXORUBICIN HYDROCHLORIDE [Suspect]
     Active Substance: DOXORUBICIN HYDROCHLORIDE
     Indication: Breast cancer
     Route: 042
     Dates: start: 20241112, end: 20241112

REACTIONS (1)
  - Infusion related reaction [Recovered/Resolved]

NARRATIVE: CASE EVENT DATE: 20241211
